FAERS Safety Report 6239259-7 (Version None)
Quarter: 2009Q2

REPORT INFORMATION
  Report Type: 
  Country: None (occurrence: None)
  Receive Date: 20090622
  Receipt Date: 20090610
  Transmission Date: 20091009
  Serious: Yes (Hospitalization, Other)
  Sender: FDA-Public Use
  Company Number: TR-AVENTIS-200916038GDDC

PATIENT
  Age: 25 Year
  Sex: Male

DRUGS (2)
  1. METRONIDAZOLE [Suspect]
     Dosage: DOSE: UNK
  2. ORNIDAZOLE [Suspect]
     Dosage: DOSE: UNK

REACTIONS (1)
  - PULMONARY ALVEOLAR HAEMORRHAGE [None]
